FAERS Safety Report 25627932 (Version 1)
Quarter: 2025Q3

REPORT INFORMATION
  Report Type: Spontaneous
  Country: US (occurrence: None)
  Receive Date: 20250731
  Receipt Date: 20250731
  Transmission Date: 20251020
  Serious: Yes (Death)
  Sender: FDA-CTU
  Company Number: None

PATIENT
  Age: 64 Year
  Sex: Male
  Weight: 43.65 kg

DRUGS (1)
  1. ZOSYN [Suspect]
     Active Substance: PIPERACILLIN SODIUM\TAZOBACTAM SODIUM
     Indication: Infection
     Dates: start: 20250730, end: 20250730

REACTIONS (5)
  - Drug monitoring procedure not performed [None]
  - Sinus bradycardia [None]
  - Cardiac arrest [None]
  - Aspiration [None]
  - Product dose omission issue [None]

NARRATIVE: CASE EVENT DATE: 20250730
